FAERS Safety Report 9415389 (Version 1)
Quarter: 2013Q3

REPORT INFORMATION
  Report Type: Spontaneous
  Country: US (occurrence: US)
  Receive Date: 20130723
  Receipt Date: 20130723
  Transmission Date: 20140515
  Serious: No
  Sender: FDA-Public Use
  Company Number: US-PFIZER INC-2013212777

PATIENT
  Sex: Female

DRUGS (5)
  1. SULFASALAZINE [Suspect]
  2. CIPROFLOXACIN [Suspect]
  3. POVIDONE-IODINE [Suspect]
  4. ASPIRIN [Suspect]
  5. HUMIRA [Suspect]

REACTIONS (1)
  - Drug hypersensitivity [Unknown]
